FAERS Safety Report 12333090 (Version 2)
Quarter: 2016Q4

REPORT INFORMATION
  Report Type: Spontaneous
  Country: US (occurrence: US)
  Receive Date: 20160504
  Receipt Date: 20161013
  Transmission Date: 20170207
  Serious: No
  Sender: FDA-Public Use
  Company Number: US-ROCHE-1714208

PATIENT
  Sex: Female

DRUGS (8)
  1. ESBRIET [Suspect]
     Active Substance: PIRFENIDONE
     Indication: IDIOPATHIC PULMONARY FIBROSIS
     Route: 048
     Dates: start: 20151204, end: 20160407
  2. LEVOTHYROXINE. [Concomitant]
     Active Substance: LEVOTHYROXINE
  3. AMLODIPINE [Concomitant]
     Active Substance: AMLODIPINE BESYLATE
  4. LISINOPRIL. [Concomitant]
     Active Substance: LISINOPRIL
  5. CRESTOR [Concomitant]
     Active Substance: ROSUVASTATIN CALCIUM
  6. ALENDRONATE [Concomitant]
     Active Substance: ALENDRONATE SODIUM
  7. CALCITRIOL. [Concomitant]
     Active Substance: CALCITRIOL
     Route: 065
  8. ESBRIET [Suspect]
     Active Substance: PIRFENIDONE
     Dosage: 2 TABS 3 TIMES A DAY
     Route: 048
     Dates: start: 201501

REACTIONS (4)
  - Constipation [Unknown]
  - Decreased appetite [Unknown]
  - Weight decreased [Unknown]
  - Headache [Recovered/Resolved]
